FAERS Safety Report 25659208 (Version 1)
Quarter: 2025Q3

REPORT INFORMATION
  Report Type: Spontaneous
  Country: EU (occurrence: EU)
  Receive Date: 20250808
  Receipt Date: 20250808
  Transmission Date: 20251021
  Serious: Yes (Hospitalization)
  Sender: TEVA
  Company Number: EU-ASTRAZENECA-202507GLO006741IT

PATIENT
  Age: 63 Year
  Sex: Male
  Weight: 83 kg

DRUGS (7)
  1. ATENOLOL [Suspect]
     Active Substance: ATENOLOL
     Indication: Hypertension
     Route: 048
     Dates: start: 20250101
  2. TOUJEO [Concomitant]
     Active Substance: INSULIN GLARGINE
     Indication: Type 2 diabetes mellitus
     Route: 065
     Dates: start: 20250419
  3. MAGNESIUM [Concomitant]
     Active Substance: MAGNESIUM
     Indication: Magnesium deficiency
     Route: 048
     Dates: start: 20250609
  4. UNSPECIFIED INGREDIENT [Concomitant]
     Active Substance: UNSPECIFIED INGREDIENT
     Indication: Antacid therapy
     Route: 048
  5. HUMALOG [Concomitant]
     Active Substance: INSULIN LISPRO
     Indication: Type 2 diabetes mellitus
     Route: 065
     Dates: start: 20250419
  6. AMLODIPINE\INDAPAMIDE\PERINDOPRIL [Concomitant]
     Active Substance: AMLODIPINE\INDAPAMIDE\PERINDOPRIL
     Indication: Hypertension
     Route: 048
     Dates: start: 20250501
  7. CEFTRIAXONE [Concomitant]
     Active Substance: CEFTRIAXONE
     Indication: Bacterial infection
     Route: 065
     Dates: start: 20250617, end: 20250624

REACTIONS (1)
  - Cholangitis [Not Recovered/Not Resolved]

NARRATIVE: CASE EVENT DATE: 20250630
